FAERS Safety Report 5203424-8 (Version None)
Quarter: 2007Q1

REPORT INFORMATION
  Report Type: 
  Country: None (occurrence: None)
  Receive Date: 20070110
  Receipt Date: 20070102
  Transmission Date: 20070707
  Serious: Yes (Hospitalization)
  Sender: FDA-Public Use
  Company Number: PHEH2006US15483

PATIENT

DRUGS (1)
  1. TOBI [Suspect]
     Indication: PSEUDOMONAS INFECTION
     Dates: start: 20061218, end: 20061225

REACTIONS (5)
  - INTRACRANIAL PRESSURE INCREASED [None]
  - LUMBAR PUNCTURE [None]
  - MENINGITIS BACTERIAL [None]
  - MYDRIASIS [None]
  - PUPILLARY LIGHT REFLEX TESTS ABNORMAL [None]
